FAERS Safety Report 21456304 (Version 1)
Quarter: 2022Q4

REPORT INFORMATION
  Report Type: Spontaneous
  Country: US (occurrence: US)
  Receive Date: 20221014
  Receipt Date: 20221014
  Transmission Date: 20230113
  Serious: Yes (Death)
  Sender: FDA-Public Use
  Company Number: US-PFIZER INC-202200354764

PATIENT
  Age: 49 Year
  Sex: Female
  Weight: 68.039 kg

DRUGS (1)
  1. VFEND [Suspect]
     Active Substance: VORICONAZOLE
     Indication: Neoplasm malignant
     Dosage: 200 MG (5 ML), TWO TIMES DAILY

REACTIONS (3)
  - Organ failure [Fatal]
  - Product prescribing error [Unknown]
  - Off label use [Unknown]

NARRATIVE: CASE EVENT DATE: 20220515
